FAERS Safety Report 6572201-8 (Version None)
Quarter: 2010Q1

REPORT INFORMATION
  Report Type: 
  Country: None (occurrence: None)
  Receive Date: 20100205
  Receipt Date: 20100126
  Transmission Date: 20100710
  Serious: Yes (Hospitalization, Other)
  Sender: FDA-Public Use
  Company Number: PHHY2009JP42923

PATIENT
  Age: 80 Year
  Sex: Male

DRUGS (3)
  1. DIOVAN [Suspect]
     Indication: HYPERTENSION
     Dosage: 80 MG, QD
     Route: 048
     Dates: start: 20080415, end: 20080425
  2. DIOVAN [Suspect]
     Indication: CARDIAC FAILURE
  3. TENORMIN [Concomitant]
     Dosage: 25 MG, UNK
     Route: 048

REACTIONS (6)
  - AGRANULOCYTOSIS [None]
  - DYSPNOEA EXERTIONAL [None]
  - GENERALISED OEDEMA [None]
  - MALAISE [None]
  - THROMBOCYTOPENIA [None]
  - WHITE BLOOD CELL COUNT DECREASED [None]
